FAERS Safety Report 7014312-9 (Version None)
Quarter: 2010Q3

REPORT INFORMATION
  Report Type: 
  Country: None (occurrence: None)
  Receive Date: 20100922
  Receipt Date: 20100916
  Transmission Date: 20110219
  Serious: Yes (Death, Hospitalization)
  Sender: FDA-Public Use
  Company Number: 2010US003805

PATIENT
  Age: 73 Year
  Sex: Male

DRUGS (2)
  1. PROGRAF [Suspect]
     Indication: RENAL TRANSPLANT
  2. ANTIHYPERTENSIVES [Concomitant]

REACTIONS (2)
  - FOOT AMPUTATION [None]
  - GANGRENE [None]
